FAERS Safety Report 6772285-8 (Version None)
Quarter: 2010Q2

REPORT INFORMATION
  Report Type: 
  Country: None (occurrence: None)
  Receive Date: 20100616
  Receipt Date: 20091103
  Transmission Date: 20101027
  Serious: No
  Sender: FDA-Public Use
  Company Number: US-ASTRAZENECA-2009SE24209

PATIENT
  Sex: Female
  Weight: 24 kg

DRUGS (3)
  1. PULMICORT RESPULES [Suspect]
     Dosage: 0.5 MG/ML BID
     Route: 055
  2. CLARITIN [Concomitant]
  3. SINGULAIR [Concomitant]

REACTIONS (1)
  - TOOTH DISCOLOURATION [None]
